FAERS Safety Report 11813908 (Version 1)
Quarter: 2015Q4

REPORT INFORMATION
  Report Type: Spontaneous
  Country: US (occurrence: None)
  Receive Date: 20151208
  Receipt Date: 20151208
  Transmission Date: 20160305
  Serious: Yes (Hospitalization)
  Sender: FDA-Public Use
  Company Number: None

PATIENT
  Age: 63 Year
  Sex: Male
  Weight: 102.7 kg

DRUGS (17)
  1. MORPHINE [Suspect]
     Active Substance: MORPHINE
     Indication: CHEST PAIN
     Dosage: 2MG, Q2HR PRN?
     Route: 042
  2. PLAVIX [Concomitant]
     Active Substance: CLOPIDOGREL BISULFATE
  3. LEVEMIR [Concomitant]
     Active Substance: INSULIN DETEMIR
  4. ZESTRIL [Concomitant]
     Active Substance: LISINOPRIL
  5. LANTUS [Concomitant]
     Active Substance: INSULIN GLARGINE
  6. DEXTROSE. [Concomitant]
     Active Substance: DEXTROSE
  7. VASOTEC [Concomitant]
     Active Substance: ENALAPRIL MALEATE
  8. GLUCAGON. [Concomitant]
     Active Substance: GLUCAGON
  9. HUMALOG [Concomitant]
     Active Substance: INSULIN LISPRO
  10. ZOFRAN [Concomitant]
     Active Substance: ONDANSETRON HYDROCHLORIDE
  11. NTG [Suspect]
     Active Substance: NITROGLYCERIN
     Indication: CHEST PAIN
     Dosage: 0.4MG, Q5MIN??
     Route: 060
  12. PEPCID [Concomitant]
     Active Substance: FAMOTIDINE
  13. NAPROXEN. [Concomitant]
     Active Substance: NAPROXEN
  14. ASA [Concomitant]
     Active Substance: ASPIRIN
  15. GLUTOSE [Concomitant]
     Active Substance: DEXTROSE
  16. LOPRESSOR [Concomitant]
     Active Substance: METOPROLOL TARTRATE
  17. PRAVACHOL [Concomitant]
     Active Substance: PRAVASTATIN SODIUM

REACTIONS (2)
  - Mental status changes [None]
  - Somnolence [None]

NARRATIVE: CASE EVENT DATE: 20150204
